FAERS Safety Report 14358501 (Version 7)
Quarter: 2020Q4

REPORT INFORMATION
  Report Type: Spontaneous
  Country: US (occurrence: US)
  Receive Date: 20180105
  Receipt Date: 20201109
  Transmission Date: 20210113
  Serious: Yes (Other)
  Sender: FDA-Public Use
  Company Number: US-SA-2017SA210189

PATIENT

DRUGS (4)
  1. DUPIXENT [Suspect]
     Active Substance: DUPILUMAB
     Indication: DERMATITIS ATOPIC
     Dosage: 300 MG,QOW
     Route: 058
     Dates: start: 20170503
  2. DUPIXENT [Suspect]
     Active Substance: DUPILUMAB
     Indication: ECZEMA
  3. SYNTHROID [Concomitant]
     Active Substance: LEVOTHYROXINE SODIUM
     Indication: HYPOTHYROIDISM
     Dosage: .075 MG,UNK
     Route: 048
     Dates: start: 2012
  4. ATORVASTATIN [Concomitant]
     Active Substance: ATORVASTATIN
     Dosage: 10 MG,UNK
     Route: 048
     Dates: start: 20161212, end: 20181111

REACTIONS (15)
  - Rash macular [Unknown]
  - Nasopharyngitis [Unknown]
  - Product storage error [Unknown]
  - Macular fibrosis [Unknown]
  - Condition aggravated [Unknown]
  - Condition aggravated [Unknown]
  - Visual impairment [Unknown]
  - Skin disorder [Unknown]
  - Muscle spasms [Unknown]
  - Accommodation disorder [Unknown]
  - Rash pruritic [Unknown]
  - Feeling hot [Unknown]
  - Rash pruritic [Not Recovered/Not Resolved]
  - Pruritus [Unknown]
  - Product use issue [Unknown]

NARRATIVE: CASE EVENT DATE: 20170920
